FAERS Safety Report 4523027-8 (Version None)
Quarter: 2004Q4

REPORT INFORMATION
  Report Type: 
  Country: None (occurrence: None)
  Receive Date: 20041210
  Receipt Date: 20041202
  Transmission Date: 20050328
  Serious: Yes (Hospitalization)
  Sender: FDA-Public Use
  Company Number: US-ABBOTT-04P-163-0282199-00

PATIENT
  Sex: Male
  Weight: 79.904 kg

DRUGS (5)
  1. HUMIRA [Suspect]
     Indication: RHEUMATOID ARTHRITIS
     Route: 058
     Dates: start: 20040801
  2. METHOTREXATE [Concomitant]
     Indication: ARTHRITIS
     Route: 048
     Dates: start: 20030101
  3. BUCINDOLOL HYDROCHLORIDE [Concomitant]
     Indication: DRUG USE FOR UNKNOWN INDICATION
     Dates: start: 20040101
  4. MELOXICAM [Concomitant]
     Indication: ARTHRITIS
     Route: 048
     Dates: start: 20041101
  5. PREDNISONE [Concomitant]
     Indication: ARTHRITIS
     Route: 048
     Dates: start: 20040101

REACTIONS (2)
  - BENIGN PROSTATIC HYPERPLASIA [None]
  - INJECTION SITE HAEMORRHAGE [None]
